FAERS Safety Report 6780025-1 (Version None)
Quarter: 2010Q2

REPORT INFORMATION
  Report Type: 
  Country: None (occurrence: None)
  Receive Date: 20100618
  Receipt Date: 20100607
  Transmission Date: 20101027
  Serious: Yes (Hospitalization)
  Sender: FDA-Public Use
  Company Number: DE-ELI_LILLY_AND_COMPANY-DE201006002681

PATIENT
  Age: 28 Year
  Sex: Male

DRUGS (8)
  1. ZYPREXA [Suspect]
     Indication: SCHIZOPHRENIA, PARANOID TYPE
     Dosage: 10 MG, DAILY (1/D)
     Route: 048
     Dates: start: 20090604, end: 20090604
  2. ZYPREXA [Suspect]
     Dosage: 20 MG, DAILY (1/D)
     Route: 048
     Dates: start: 20090605, end: 20090702
  3. ZYPREXA [Suspect]
     Dosage: 25 MG, DAILY (1/D)
     Route: 048
     Dates: start: 20090703, end: 20090706
  4. ZYPREXA [Suspect]
     Dosage: 30 MG, DAILY (1/D)
     Route: 048
     Dates: start: 20090707, end: 20090813
  5. ZYPREXA [Suspect]
     Dosage: 20 MG, DAILY (1/D)
     Route: 048
     Dates: start: 20090814, end: 20090824
  6. PANTOZOL [Concomitant]
     Dosage: 40 MG, UNK
     Route: 048
     Dates: start: 20090609, end: 20090830
  7. LORAZEPAM [Concomitant]
     Dosage: 1.5 MG, DAILY (1/D)
     Route: 030
     Dates: start: 20090604
  8. LORAZEPAM [Concomitant]
     Dosage: 4 MG, DAILY (1/D)
     Route: 030
     Dates: end: 20090712

REACTIONS (3)
  - METABOLIC SYNDROME [None]
  - OVERDOSE [None]
  - WEIGHT INCREASED [None]
